FAERS Safety Report 25720267 (Version 1)
Quarter: 2025Q3

REPORT INFORMATION
  Report Type: Spontaneous
  Country: GB (occurrence: GB)
  Receive Date: 20250825
  Receipt Date: 20250825
  Transmission Date: 20251021
  Serious: Yes (Other)
  Sender: CELLTRION
  Company Number: GB-ROCHE-10000354887

PATIENT

DRUGS (10)
  1. RITUXIMAB [Suspect]
     Active Substance: RITUXIMAB
     Indication: Mantle cell lymphoma
     Dosage: 600 MG, EVERY 4 WEEKS, DOSE LAST STUDY DRUG ADMIN PRIOR AE IS 600 MG, 30-JUN-2025
     Route: 042
     Dates: start: 20241216
  2. LENALIDOMIDE [Suspect]
     Active Substance: LENALIDOMIDE
     Indication: Mantle cell lymphoma
     Route: 048
     Dates: start: 20241216
  3. ACETAMINOPHEN [Concomitant]
     Active Substance: ACETAMINOPHEN
     Route: 048
     Dates: start: 20241216, end: 20241216
  4. ACETAMINOPHEN [Concomitant]
     Active Substance: ACETAMINOPHEN
     Route: 048
     Dates: start: 20250113, end: 20250113
  5. ATORVASTATIN [Concomitant]
     Active Substance: ATORVASTATIN
     Route: 048
     Dates: start: 20211110
  6. IVABRIDINE [Concomitant]
     Indication: Cardiomyopathy
     Route: 048
     Dates: start: 20191212
  7. OMEPRAZOLE [Concomitant]
     Active Substance: OMEPRAZOLE
     Route: 048
     Dates: start: 20180228
  8. RAMIPRIL [Concomitant]
     Active Substance: RAMIPRIL
     Indication: Cardiomyopathy
     Route: 048
     Dates: start: 20191115
  9. SPIRONOLACTONE [Concomitant]
     Active Substance: SPIRONOLACTONE
     Indication: Cardiomyopathy
     Route: 048
     Dates: start: 20220913
  10. CHLORPHENIRAMINE MALEATE [Concomitant]
     Active Substance: CHLORPHENIRAMINE MALEATE
     Indication: Pruritus
     Route: 048
     Dates: start: 202501

REACTIONS (2)
  - Creatinine renal clearance decreased [Not Recovered/Not Resolved]
  - Intentional product use issue [Unknown]

NARRATIVE: CASE EVENT DATE: 20250728
